FAERS Safety Report 21061290 (Version 1)
Quarter: 2022Q3

REPORT INFORMATION
  Report Type: Spontaneous
  Country: US (occurrence: US)
  Receive Date: 20220709
  Receipt Date: 20220709
  Transmission Date: 20221027
  Serious: No
  Sender: FDA-Public Use
  Company Number: US-SANOFI-01174666

PATIENT

DRUGS (1)
  1. NASACORT ALLERGY 24HR [Suspect]
     Active Substance: TRIAMCINOLONE ACETONIDE
     Dosage: 60 SPRAY AND USE TWICE A DAY
     Route: 065

REACTIONS (1)
  - Product use issue [Unknown]
